FAERS Safety Report 17392156 (Version 4)
Quarter: 2020Q2

REPORT INFORMATION
  Report Type: Report from Study
  Country: PL (occurrence: PL)
  Receive Date: 20200207
  Receipt Date: 20200519
  Transmission Date: 20200713
  Serious: Yes (Other)
  Sender: FDA-Public Use
  Company Number: PL-BEIGENE AUS PTY LTD-BGN-2020-000196

PATIENT

DRUGS (7)
  1. BGB-3111 [Suspect]
     Active Substance: ZANUBRUTINIB
     Indication: CHRONIC LYMPHOCYTIC LEUKAEMIA
     Dosage: 160 MILLIGRAM, BID
     Route: 048
     Dates: start: 20190228, end: 20200131
  2. TAMISPRAS [Concomitant]
     Active Substance: TAMSULOSIN HYDROCHLORIDE
     Indication: BENIGN PROSTATIC HYPERPLASIA
     Dosage: 0.4 MILLIGRAM, QD
     Route: 048
     Dates: start: 20191010
  3. ATENOLOL. [Concomitant]
     Active Substance: ATENOLOL
     Indication: HYPERTENSION
     Dosage: 25 MILLIGRAM, QD
     Route: 048
     Dates: start: 1984
  4. ESTAZOLAM. [Concomitant]
     Active Substance: ESTAZOLAM
     Indication: SLEEP DISORDER
     Dosage: 2 MILLIGRAM, QD
     Route: 048
     Dates: start: 2010
  5. KALDYUM [Concomitant]
     Active Substance: POTASSIUM CHLORIDE
     Indication: BLOOD POTASSIUM DECREASED
     Dosage: 600 MILLIGRAM, QD
     Route: 048
     Dates: start: 2016
  6. MILURIT [Concomitant]
     Active Substance: ALLOPURINOL
     Indication: PROPHYLAXIS
     Dosage: 100 MILLIGRAM, QD
     Dates: start: 2016
  7. UROSEPT [Concomitant]
     Indication: BENIGN PROSTATIC HYPERPLASIA
     Dosage: 2 DOSAGE FORM, BID
     Route: 048
     Dates: start: 20191217

REACTIONS (1)
  - Hepatitis B reactivation [Recovering/Resolving]

NARRATIVE: CASE EVENT DATE: 20200131
